FAERS Safety Report 5119073-6 (Version None)
Quarter: 2006Q3

REPORT INFORMATION
  Report Type: 
  Country: None (occurrence: None)
  Receive Date: 20060927
  Receipt Date: 20060912
  Transmission Date: 20061208
  Serious: Yes (Death)
  Sender: FDA-Public Use
  Company Number: RENA-11755

PATIENT
  Age: 57 Year
  Sex: Male
  Weight: 166.4 kg

DRUGS (13)
  1. RENAGEL [Suspect]
     Indication: HYPERPHOSPHATAEMIA
     Dosage: 1.6 G TID PO
     Route: 048
     Dates: start: 20060216, end: 20060515
  2. RENAGEL [Suspect]
     Indication: HYPERPHOSPHATAEMIA
     Dosage: 0.8 G TID PO
     Route: 048
     Dates: start: 20041020, end: 20060215
  3. BACTROBAN [Concomitant]
  4. LIPITOR [Concomitant]
  5. DARVON [Concomitant]
  6. DIATX VITAMIN [Concomitant]
  7. NIFEREX [Concomitant]
  8. PRILOSEC [Concomitant]
  9. DEXFOL [Concomitant]
  10. HUMULIN [Concomitant]
  11. ALLOPURINOL [Concomitant]
  12. CELEXA [Concomitant]
  13. EPOGEN [Concomitant]

REACTIONS (16)
  - ABDOMINAL ABSCESS [None]
  - BLOOD CHLORIDE DECREASED [None]
  - BLOOD GLUCOSE INCREASED [None]
  - BLOOD PHOSPHORUS INCREASED [None]
  - CARBON DIOXIDE DECREASED [None]
  - CONSTIPATION [None]
  - DIARRHOEA [None]
  - HAEMATOCRIT DECREASED [None]
  - HAEMOGLOBIN DECREASED [None]
  - LABORATORY TEST ABNORMAL [None]
  - NAUSEA [None]
  - PHARMACEUTICAL PRODUCT COMPLAINT [None]
  - PLATELET COUNT INCREASED [None]
  - RED BLOOD CELL COUNT DECREASED [None]
  - VOMITING [None]
  - WHITE BLOOD CELL COUNT INCREASED [None]
